FAERS Safety Report 18682497 (Version 1)
Quarter: 2020Q4

REPORT INFORMATION
  Report Type: Spontaneous
  Country: US (occurrence: US)
  Receive Date: 20201229
  Receipt Date: 20201229
  Transmission Date: 20210114
  Serious: Yes (Hospitalization)
  Sender: FDA-Public Use
  Company Number: None

PATIENT
  Age: 32 Year
  Sex: Male

DRUGS (3)
  1. CLOBETASOL 0.05% OINTMENT [Concomitant]
     Active Substance: CLOBETASOL
     Dates: start: 20200715
  2. LAMOTRIGINE. [Suspect]
     Active Substance: LAMOTRIGINE
     Indication: GENERALISED TONIC-CLONIC SEIZURE
     Route: 048
     Dates: start: 20130701, end: 20200715
  3. BACITRACIN ZINC OINTMENT [Concomitant]
     Active Substance: BACITRACIN ZINC
     Dates: start: 20200715, end: 20200716

REACTIONS (6)
  - Stevens-Johnson syndrome [None]
  - Lip blister [None]
  - Tremor [None]
  - Rash [None]
  - Penile blister [None]
  - Drug hypersensitivity [None]

NARRATIVE: CASE EVENT DATE: 20200715
